FAERS Safety Report 4875400-6 (Version None)
Quarter: 2006Q1

REPORT INFORMATION
  Report Type: 
  Country: None (occurrence: None)
  Receive Date: 20060105
  Receipt Date: 20051223
  Transmission Date: 20060701
  Serious: Yes (Other)
  Sender: FDA-Public Use
  Company Number: 2005173296

PATIENT
  Sex: Female
  Weight: 79.3795 kg

DRUGS (8)
  1. BEXTRA [Suspect]
     Indication: ARTHRITIS
     Dates: start: 20020101, end: 20050201
  2. IBUPROFEN [Suspect]
     Indication: ARTHRITIS
     Dosage: 1200 MG (400 MG, 3 IN 1 D)
     Dates: end: 20021101
  3. AMARYL [Concomitant]
  4. CLORAZEPATE (CLORAZEPATE DIPOTASSIUM) [Concomitant]
  5. DYNACIRC [Concomitant]
  6. ALLEGRA [Concomitant]
  7. METHYLDOPA [Concomitant]
  8. SYNTHROID [Concomitant]

REACTIONS (10)
  - BLISTER [None]
  - FALL [None]
  - GASTRIC ULCER [None]
  - HIP FRACTURE [None]
  - INSOMNIA [None]
  - PHOTOSENSITIVITY ALLERGIC REACTION [None]
  - PRURITUS [None]
  - SCAB [None]
  - SCAR [None]
  - SKIN HAEMORRHAGE [None]
